FAERS Safety Report 8972430 (Version 2)
Quarter: 2014Q2

REPORT INFORMATION
  Report Type: Spontaneous
  Country: US (occurrence: US)
  Receive Date: 20121218
  Receipt Date: 20131024
  Transmission Date: 20141212
  Serious: No
  Sender: FDA-Public Use
  Company Number: US-PFIZER INC-2012265541

PATIENT
  Age: 64 Year
  Sex: Female
  Weight: 263 kg

DRUGS (3)
  1. PREMPRO [Suspect]
     Indication: MENOPAUSAL SYMPTOMS
     Dosage: 0.625/ 2.5 MG, UNK
     Dates: start: 2012
  2. DILTIAZEM [Concomitant]
     Indication: HYPERTENSION
     Dosage: 180 MG, DAILY
  3. LISINOPRIL [Concomitant]
     Indication: HYPERTENSION
     Dosage: 10 MG, DAILY

REACTIONS (8)
  - Muscle spasms [Unknown]
  - Anxiety [Unknown]
  - Insomnia [Unknown]
  - Swelling [Unknown]
  - Irritability [Unknown]
  - Product quality issue [Unknown]
  - Drug ineffective [Unknown]
  - Hot flush [Unknown]
